FAERS Safety Report 7225338-4 (Version None)
Quarter: 2011Q1

REPORT INFORMATION
  Report Type: 
  Country: None (occurrence: None)
  Receive Date: 20110113
  Receipt Date: 20110104
  Transmission Date: 20110831
  Serious: Yes (Life-Threatening, Hospitalization)
  Sender: FDA-Public Use
  Company Number: TR-WATSON-2011-00275

PATIENT
  Age: 47 Year
  Sex: Male

DRUGS (2)
  1. SERTRALINE HYDROCHLORIDE [Suspect]
     Indication: DEPRESSION
     Dosage: 100 MG, DAILY
  2. MIVACURIUM [Suspect]
     Indication: ENDOTRACHEAL INTUBATION
     Dosage: 17 MG, UNK

REACTIONS (3)
  - APNOEA [None]
  - NEUROMUSCULAR BLOCK PROLONGED [None]
  - PSEUDOCHOLINESTERASE DEFICIENCY [None]
